FAERS Safety Report 14409964 (Version 3)
Quarter: 2018Q2

REPORT INFORMATION
  Report Type: Spontaneous
  Country: US (occurrence: US)
  Receive Date: 20180119
  Receipt Date: 20180530
  Transmission Date: 20180711
  Serious: Yes (Hospitalization, Other)
  Sender: FDA-Public Use
  Company Number: US-BAYER-2018-009269

PATIENT
  Age: 56 Year
  Sex: Male

DRUGS (1)
  1. CIPRO [Suspect]
     Active Substance: CIPROFLOXACIN HYDROCHLORIDE
     Indication: PROSTATITIS
     Dosage: 500 MG, UNK
     Dates: start: 201510, end: 20160808

REACTIONS (18)
  - Quality of life decreased [Not Recovered/Not Resolved]
  - Nausea [None]
  - Movement disorder [None]
  - Loss of consciousness [None]
  - Mobility decreased [Not Recovered/Not Resolved]
  - Immune system disorder [Not Recovered/Not Resolved]
  - Gastrointestinal disorder [Not Recovered/Not Resolved]
  - Chest pain [None]
  - Gait disturbance [Not Recovered/Not Resolved]
  - Pain [None]
  - Impaired work ability [Not Recovered/Not Resolved]
  - Peripheral swelling [None]
  - Nerve injury [None]
  - Toxicity to various agents [Not Recovered/Not Resolved]
  - Neuropathy peripheral [Not Recovered/Not Resolved]
  - Pain [Not Recovered/Not Resolved]
  - Dyspnoea [None]
  - Erythema [None]

NARRATIVE: CASE EVENT DATE: 20151102
